FAERS Safety Report 13893515 (Version 1)
Quarter: 2017Q3

REPORT INFORMATION
  Report Type: Spontaneous
  Country: CH (occurrence: CH)
  Receive Date: 20170822
  Receipt Date: 20170822
  Transmission Date: 20171127
  Serious: Yes (Hospitalization)
  Sender: FDA-Public Use
  Company Number: CH-NAPPMUNDI-GBR-2017-0048003

PATIENT
  Age: 51 Year
  Sex: Male
  Weight: 72.7 kg

DRUGS (10)
  1. DIAPHIN [Suspect]
     Active Substance: DIACETYLMORPHINE HYDROCHLORIDE
     Indication: PRODUCT USED FOR UNKNOWN INDICATION
     Dosage: 2.5 DF, DAILY
     Route: 065
  2. PRADIF T [Concomitant]
     Active Substance: TAMSULOSIN HYDROCHLORIDE
     Dosage: 1 DF, DAILY
     Route: 048
  3. SIMVASIN SPIRIG [Concomitant]
     Dosage: 1 DF, DAILY
  4. ZYPREXA [Concomitant]
     Active Substance: OLANZAPINE
     Dosage: 1 DF, DAILY
     Route: 048
  5. GYNO TARDYFERON [Concomitant]
     Dosage: 1 DF, DAILY; 1 DF: IRON 80 MG, FOLIC ACID 0.35 MG
     Route: 048
  6. LEXOTANIL [Concomitant]
     Active Substance: BROMAZEPAM
  7. TRITTICO [Concomitant]
     Active Substance: TRAZODONE HYDROCHLORIDE
     Dosage: 1 DF, DAILY
  8. PANTOZOL [Concomitant]
     Active Substance: PANTOPRAZOLE SODIUM
     Dosage: 1 DF, DAILY
  9. SEVRE-LONG [Suspect]
     Active Substance: MORPHINE SULFATE
     Indication: PRODUCT USED FOR UNKNOWN INDICATION
     Dosage: 1 DF, DAILY (STRENGTH 120MG)
     Route: 065
  10. SYMBICORT [Suspect]
     Active Substance: BUDESONIDE\FORMOTEROL FUMARATE DIHYDRATE
     Indication: PRODUCT USED FOR UNKNOWN INDICATION
     Dosage: 2 DF, DAILY
     Route: 055

REACTIONS (1)
  - Pneumonia [Not Recovered/Not Resolved]

NARRATIVE: CASE EVENT DATE: 201702
